FAERS Safety Report 8796133 (Version 1)
Quarter: 2012Q4

REPORT INFORMATION
  Report Type: 
  Country: FR (occurrence: FR)
  Receive Date: 20120920
  Receipt Date: 20120920
  Transmission Date: 20130627
  Serious: Yes (Hospitalization)
  Sender: FDA-Public Use
  Company Number: FR-BRISTOL-MYERS SQUIBB COMPANY-16950362

PATIENT
  Age: 65 Year
  Sex: Male

DRUGS (9)
  1. APROVEL [Suspect]
     Route: 048
     Dates: end: 20120716
  2. GLUCOPHAGE TABS 1000 MG [Suspect]
     Indication: DIABETES MELLITUS
     Dosage: film coated tabs
     Route: 048
  3. LANTUS [Concomitant]
  4. KARDEGIC [Concomitant]
  5. MOPRAL [Concomitant]
  6. LYRICA [Concomitant]
  7. EXELON [Concomitant]
  8. SERMION [Concomitant]
  9. NOCTAMIDE [Concomitant]

REACTIONS (2)
  - Renal failure acute [Recovered/Resolved]
  - Condition aggravated [Recovered/Resolved]
